FAERS Safety Report 19516693 (Version 1)
Quarter: 2021Q3

REPORT INFORMATION
  Report Type: Other
  Country: US (occurrence: US)
  Receive Date: 20210711
  Receipt Date: 20210711
  Transmission Date: 20211014
  Serious: Yes (Hospitalization)
  Sender: FDA-Public Use
  Company Number: US-ROCHE-2861638

PATIENT
  Sex: Male
  Weight: 77.63 kg

DRUGS (6)
  1. ESBRIET [Suspect]
     Active Substance: PIRFENIDONE
     Indication: IDIOPATHIC PULMONARY FIBROSIS
  2. BROVANA [Concomitant]
     Active Substance: ARFORMOTEROL TARTRATE
     Dates: start: 20190225
  3. ESBRIET [Suspect]
     Active Substance: PIRFENIDONE
     Indication: PULMONARY FIBROSIS
     Dosage: 1 CAPSULES (267 MG) ORALLY 3 TIMES PER DAY FOR 7 DAYS WITH FOOD
     Route: 048
     Dates: start: 20190225
  4. ESBRIET [Suspect]
     Active Substance: PIRFENIDONE
     Indication: IDIOPATHIC PULMONARY FIBROSIS
  5. ESBRIET [Suspect]
     Active Substance: PIRFENIDONE
     Indication: PULMONARY FIBROSIS
     Dosage: TAKE 2 TABLETS BY MOUTH THREE TIMES DAILY, 3 TABLETS THRICE A DAY
     Route: 048
  6. OXYGEN. [Concomitant]
     Active Substance: OXYGEN

REACTIONS (1)
  - Renal disorder [Unknown]
